FAERS Safety Report 5823497-9 (Version None)
Quarter: 2008Q3

REPORT INFORMATION
  Report Type: 
  Country: None (occurrence: None)
  Receive Date: 20080725
  Receipt Date: 20080717
  Transmission Date: 20090109
  Serious: Yes (Other)
  Sender: FDA-Public Use
  Company Number: ES-PFIZER INC-2008060412

PATIENT
  Age: 38 Year
  Sex: Female

DRUGS (8)
  1. IRINOTECAN HCL [Suspect]
     Indication: COLON CANCER
     Route: 042
  2. FLUOROURACIL [Concomitant]
     Indication: COLON CANCER
     Dosage: DAILY DOSE:1000MG/M2-FREQ:CONTINUOUSLY FOR 4 DAYS EVERY 15 DAYS
     Route: 042
  3. ONDANSETRON [Concomitant]
     Indication: PREMEDICATION
  4. DEXAMETHASONE [Concomitant]
     Indication: PREMEDICATION
  5. ATROPINE [Concomitant]
     Indication: PREMEDICATION
  6. FENTANYL [Concomitant]
  7. DIAZEPAM [Concomitant]
     Route: 048
  8. AMITRIPTYLINE HCL [Concomitant]
     Route: 048

REACTIONS (2)
  - APHASIA [None]
  - DYSARTHRIA [None]
